FAERS Safety Report 23313366 (Version 1)
Quarter: 2023Q4

REPORT INFORMATION
  Report Type: Spontaneous
  Country: HR (occurrence: HR)
  Receive Date: 20231219
  Receipt Date: 20231219
  Transmission Date: 20240109
  Serious: Yes (Other)
  Sender: FDA-Public Use
  Company Number: None

PATIENT

DRUGS (2)
  1. OXAZEPAM [Suspect]
     Active Substance: OXAZEPAM
     Dosage: UNKNOWN
     Route: 048
     Dates: start: 202308, end: 202308
  2. IBUPROFEN [Suspect]
     Active Substance: IBUPROFEN
     Dosage: UNKNOWN
     Route: 048
     Dates: start: 202308, end: 202308

REACTIONS (1)
  - Suicide attempt [Unknown]

NARRATIVE: CASE EVENT DATE: 20230801
